FAERS Safety Report 8204090-X (Version None)
Quarter: 2012Q1

REPORT INFORMATION
  Report Type: 
  Country: None (occurrence: None)
  Receive Date: 20120313
  Receipt Date: 20120302
  Transmission Date: 20120608
  Serious: Yes (Hospitalization)
  Sender: FDA-Public Use
  Company Number: NL-B.I. PHARMACEUTICALS,INC./RIDGEFIELD-2012-NL-00065NL

PATIENT
  Sex: Male

DRUGS (1)
  1. ACENOCOUMAROL [Suspect]

REACTIONS (1)
  - CEREBRAL HAEMORRHAGE [None]
